FAERS Safety Report 7437270-1 (Version None)
Quarter: 2011Q2

REPORT INFORMATION
  Report Type: 
  Country: None (occurrence: None)
  Receive Date: 20110426
  Receipt Date: 20110414
  Transmission Date: 20111010
  Serious: Yes (Hospitalization, Other)
  Sender: FDA-Public Use
  Company Number: CH-KINGPHARMUSA00001-K201100451

PATIENT
  Age: 87 Year
  Sex: Female

DRUGS (6)
  1. PANTOZOL [Suspect]
     Indication: PROPHYLAXIS
     Dosage: 20 MG, QD
     Route: 048
     Dates: start: 20100101, end: 20110201
  2. NOVALGIN [Suspect]
     Indication: PAIN
     Dosage: UNK
     Route: 048
     Dates: end: 20110209
  3. BELOC ZOK [Concomitant]
     Dosage: 50 MG, QD
     Route: 048
     Dates: start: 20100101
  4. SPIRONOLACTONE [Suspect]
     Indication: ESSENTIAL HYPERTENSION
     Dosage: 25 MG, QD
     Route: 048
     Dates: start: 20100101, end: 20110201
  5. ALTACE [Suspect]
     Indication: ESSENTIAL HYPERTENSION
     Dosage: 5 MG, QD
     Route: 048
     Dates: start: 20100101, end: 20110201
  6. ACETYLSALICYLIC ACID SRT [Concomitant]
     Dosage: 100 MG, QD
     Route: 048
     Dates: start: 20100101

REACTIONS (5)
  - AGRANULOCYTOSIS [None]
  - ERYSIPELAS [None]
  - ANAEMIA [None]
  - BONE MARROW FAILURE [None]
  - LEUKOPENIA [None]
